FAERS Safety Report 24043989 (Version 7)
Quarter: 2025Q4

REPORT INFORMATION
  Report Type: Spontaneous
  Country: US (occurrence: US)
  Receive Date: 20240703
  Receipt Date: 20251128
  Transmission Date: 20260118
  Serious: No
  Sender: ABBVIE
  Company Number: US-ABBVIE-5823601

PATIENT
  Age: 70 Year
  Sex: Female
  Weight: 58.966 kg

DRUGS (12)
  1. RESTASIS [Suspect]
     Active Substance: CYCLOSPORINE
     Indication: Dry eye
     Route: 047
     Dates: start: 2019
  2. RESTASIS [Suspect]
     Active Substance: CYCLOSPORINE
     Dosage: FORM: SINGLE USE VIAL
     Route: 047
     Dates: start: 20211012
  3. LOSARTAN [Concomitant]
     Active Substance: LOSARTAN
     Indication: Hypertension
     Dosage: MOUTH
     Route: 048
     Dates: start: 2013
  4. PROLIA [Concomitant]
     Active Substance: DENOSUMAB
     Indication: Osteoporosis
     Route: 058
     Dates: start: 2018
  5. INFLUENZA VIRUS VACCINE [Concomitant]
     Active Substance: INFLUENZA VIRUS VACCINE
     Indication: Product used for unknown indication
     Dosage: ANNUAL
  6. Magnesium+Calcium+D3 [Concomitant]
     Indication: Osteopenia
     Dosage: MOUTH
     Route: 048
  7. Bacopa [Concomitant]
     Indication: Mental disorder
     Dosage: MOUTH
     Route: 048
  8. HERBALS\WITHANIA SOMNIFERA ROOT [Concomitant]
     Active Substance: HERBALS\WITHANIA SOMNIFERA ROOT
     Indication: Stress
     Dosage: MOUTH
     Route: 048
  9. VITAMINS [Concomitant]
     Active Substance: VITAMINS
     Indication: Product used for unknown indication
  10. CLARITIN [Concomitant]
     Active Substance: LORATADINE
     Indication: Seasonal allergy
     Dosage: MOUTH?OR SIMILAR
     Route: 048
  11. VALACYCLOVIR HYDROCHLORIDE [Concomitant]
     Active Substance: VALACYCLOVIR HYDROCHLORIDE
     Indication: Product used for unknown indication
     Dosage: TIME INTERVAL: AS NECESSARY: FREQUENCY: 3 TIMES DAY AT HERPES OUTBREAK THEN 1TIMES DAY, ROA: MOUTH.
     Route: 065
     Dates: start: 20240407
  12. ACYCLOVIR [Concomitant]
     Active Substance: ACYCLOVIR
     Indication: Product used for unknown indication
     Dosage: TIME INTERVAL: 0.33333333 DAYS: FREQUENCY: 3 TIME DAY FOR 10DAY. ROA: MOUTH
     Dates: start: 20230923, end: 20231001

REACTIONS (4)
  - Blepharitis [Not Recovered/Not Resolved]
  - Herpes virus infection [Unknown]
  - Eye disorder [Recovered/Resolved]
  - Drug ineffective [Unknown]

NARRATIVE: CASE EVENT DATE: 20240101
